FAERS Safety Report 21444057 (Version 1)
Quarter: 2022Q4

REPORT INFORMATION
  Report Type: Spontaneous
  Country: US (occurrence: US)
  Receive Date: 20221012
  Receipt Date: 20221012
  Transmission Date: 20230113
  Serious: No
  Sender: FDA-Public Use
  Company Number: US-BoehringerIngelheim-2022-BI-196749

PATIENT
  Age: 62 Year
  Sex: Female

DRUGS (1)
  1. JARDIANCE [Suspect]
     Active Substance: EMPAGLIFLOZIN
     Indication: Glucose tolerance impaired
     Route: 048
     Dates: start: 202208, end: 202208

REACTIONS (4)
  - Pruritus [Unknown]
  - Hypotension [Unknown]
  - Dizziness exertional [Unknown]
  - Off label use [Unknown]

NARRATIVE: CASE EVENT DATE: 20220801
